FAERS Safety Report 10997441 (Version 1)
Quarter: 2015Q2

REPORT INFORMATION
  Report Type: Spontaneous
  Country: US (occurrence: None)
  Receive Date: 20150407
  Receipt Date: 20150407
  Transmission Date: 20150821
  Serious: No
  Sender: FDA-Public Use
  Company Number: None

PATIENT
  Age: 72 Year
  Sex: Male
  Weight: 82.9 kg

DRUGS (1)
  1. RITUXIMAB (MOAB C2B8 ANTI CD20, CHIMERIC) [Suspect]
     Active Substance: RITUXIMAB

REACTIONS (4)
  - Back pain [None]
  - Transitional cell carcinoma [None]
  - Metastasis [None]
  - Hydronephrosis [None]

NARRATIVE: CASE EVENT DATE: 20130329
